FAERS Safety Report 4576336-0 (Version None)
Quarter: 2005Q1

REPORT INFORMATION
  Report Type: 
  Country: None (occurrence: None)
  Receive Date: 20050207
  Receipt Date: 20050201
  Transmission Date: 20050727
  Serious: Yes (Hospitalization)
  Sender: FDA-Public Use
  Company Number: TCI2004A04471

PATIENT
  Age: 49 Year
  Sex: Female

DRUGS (7)
  1. LEUPLIN [Suspect]
     Indication: MENORRHAGIA
     Dosage: 3.75 MG (3.75 MG, 1 IN 28 D) SUBCUTANEOUS
     Route: 058
     Dates: start: 20041120, end: 20041218
  2. PANOVAR (ETHINYL ESTRADIOL W/NORGESTREL) (TABLETS) [Suspect]
     Indication: MENORRHAGIA
     Dosage: 2 TAB. (1 TAB. 2 IN 1 D) PER ORAL
     Route: 048
     Dates: start: 20041120, end: 20041126
  3. PANOVAR (ETHINYL ESTRADIOL W/NORGESTREL) (TABLETS) [Suspect]
     Indication: MENORRHAGIA
     Dosage: 2 TAB. (1 TAB. 2 IN 1 D) PER ORAL
     Route: 048
     Dates: start: 20041203
  4. PLANOVAR (ETHINYL ESTRADIOL W/NORGESTREL) (TABLETS) [Suspect]
     Indication: MENORRHAGIA
     Dosage: 1 TAB (1 TAB. IN 1 D) PER ORAL
     Route: 048
     Dates: start: 20041201, end: 20041202
  5. FERROMIA            (FERROUS CITRATE) [Concomitant]
  6. ......... [Concomitant]
  7. CINAL     (CINAL) [Concomitant]

REACTIONS (12)
  - ARTERIAL THROMBOSIS LIMB [None]
  - DIFFICULTY IN WALKING [None]
  - GENITAL HAEMORRHAGE [None]
  - HYPOAESTHESIA [None]
  - INADEQUATE ANALGESIA [None]
  - INSOMNIA [None]
  - MYALGIA [None]
  - PAIN [None]
  - PAIN IN EXTREMITY [None]
  - PERIPHERAL COLDNESS [None]
  - PULSE PRESSURE DECREASED [None]
  - THROMBOSIS [None]
